FAERS Safety Report 4679815-0 (Version None)
Quarter: 2005Q2

REPORT INFORMATION
  Report Type: 
  Country: None (occurrence: None)
  Receive Date: 20050531
  Receipt Date: 20050525
  Transmission Date: 20051028
  Serious: Yes (Hospitalization)
  Sender: FDA-Public Use
  Company Number: A0560195A

PATIENT
  Age: 64 Year
  Sex: Male

DRUGS (2)
  1. NAVELBINE [Suspect]
     Indication: LUNG NEOPLASM MALIGNANT
     Dosage: CYCLIC / INTRAVENOUS
     Route: 042
     Dates: start: 20050405, end: 20050412
  2. CARBOPLATIN [Concomitant]

REACTIONS (3)
  - BURNING SENSATION [None]
  - MYOCARDIAL ISCHAEMIA [None]
  - PAIN IN EXTREMITY [None]
